FAERS Safety Report 6145535-9 (Version None)
Quarter: 2009Q2

REPORT INFORMATION
  Report Type: 
  Country: None (occurrence: None)
  Receive Date: 20090402
  Receipt Date: 20090318
  Transmission Date: 20091009
  Serious: Yes (Hospitalization)
  Sender: FDA-Public Use
  Company Number: 200916918GPV

PATIENT
  Age: 58 Year
  Sex: Male

DRUGS (8)
  1. FLUDARABINE PHOSPHATE [Suspect]
     Indication: CHRONIC LYMPHOCYTIC LEUKAEMIA
     Dosage: 40 MG/M2, ORAL
     Route: 048
     Dates: start: 20080514, end: 20081016
  2. CAMPATH [Suspect]
     Indication: CHRONIC LYMPHOCYTIC LEUKAEMIA
     Dosage: 30 MG/M2, SUBCUTANEOUS
     Route: 058
     Dates: start: 20080514, end: 20081016
  3. CYCLOPHOSPHAMIDE [Suspect]
     Indication: CHRONIC LYMPHOCYTIC LEUKAEMIA
     Dosage: 250 MG/M2, ORAL
     Route: 048
     Dates: start: 20080514, end: 20081016
  4. BACTRIM [Concomitant]
  5. VALACYCLOVIR HCL [Concomitant]
  6. SPECLAFOLDINE (FOLIC ACID) [Concomitant]
  7. VFEND [Concomitant]
  8. XALATAN (LATANOPROST) [Concomitant]

REACTIONS (1)
  - CHOLELITHIASIS OBSTRUCTIVE [None]
